FAERS Safety Report 14476414 (Version 1)
Quarter: 2018Q1

REPORT INFORMATION
  Report Type: Spontaneous
  Country: GR (occurrence: GR)
  Receive Date: 20180201
  Receipt Date: 20180201
  Transmission Date: 20180509
  Serious: Yes (Other)
  Sender: FDA-Public Use
  Company Number: GR-TEVA-2018-GR-849939

PATIENT
  Sex: Female

DRUGS (6)
  1. LETROZOLE. [Suspect]
     Active Substance: LETROZOLE
     Indication: METASTASES TO BONE
  2. FASLODEX [Suspect]
     Active Substance: FULVESTRANT
     Indication: METASTASES TO BONE
  3. LETROZOLE. [Suspect]
     Active Substance: LETROZOLE
     Indication: HER-2 POSITIVE BREAST CANCER
     Dosage: 2.5 MG, UNK
     Route: 065
     Dates: start: 201406, end: 201606
  4. FASLODEX [Suspect]
     Active Substance: FULVESTRANT
     Indication: HER-2 POSITIVE BREAST CANCER
     Dosage: 500 MG, QMO
     Route: 065
     Dates: start: 201606, end: 201610
  5. NOLVADEX [Suspect]
     Active Substance: TAMOXIFEN CITRATE
     Indication: METASTASES TO BONE
     Dosage: UNK
     Route: 065
     Dates: start: 201610, end: 201710
  6. NOLVADEX [Suspect]
     Active Substance: TAMOXIFEN CITRATE
     Indication: HER-2 POSITIVE BREAST CANCER

REACTIONS (3)
  - Breast cancer [Unknown]
  - Metastases to bone [Unknown]
  - Metastases to liver [Unknown]
